FAERS Safety Report 8102378-4 (Version None)
Quarter: 2012Q1

REPORT INFORMATION
  Report Type: 
  Country: None (occurrence: None)
  Receive Date: 20120201
  Receipt Date: 20120125
  Transmission Date: 20120608
  Serious: No
  Sender: FDA-Public Use
  Company Number: US-PFIZER INC-2012022940

PATIENT
  Sex: Male
  Weight: 79.365 kg

DRUGS (6)
  1. VIAGRA [Suspect]
     Indication: ERECTILE DYSFUNCTION
     Dosage: 50 MG, AS NEEDED
     Route: 048
     Dates: start: 20110101
  2. CIALIS [Suspect]
     Indication: ERECTILE DYSFUNCTION
     Dosage: 20 MG, AS NEEDED
  3. VIAGRA [Suspect]
     Dosage: 150 MG, AS NEEDED
     Route: 048
     Dates: start: 20110101
  4. LISINOPRIL [Suspect]
     Dosage: 50 MG,DAILY
     Route: 048
  5. HYDROCHLOROTHIAZIDE [Suspect]
     Dosage: 20 MG,DAILY
  6. VIAGRA [Suspect]
     Dosage: 100 MG, AS NEEDED
     Route: 048
     Dates: start: 20110101

REACTIONS (3)
  - BACK PAIN [None]
  - ERECTILE DYSFUNCTION [None]
  - DRUG INEFFECTIVE [None]
